FAERS Safety Report 4336364-7 (Version None)
Quarter: 2004Q2

REPORT INFORMATION
  Report Type: 
  Country: None (occurrence: None)
  Receive Date: 20040407
  Receipt Date: 20040318
  Transmission Date: 20050107
  Serious: Yes (Hospitalization, Other)
  Sender: FDA-Public Use
  Company Number: USA040260405

PATIENT
  Age: 76 Year
  Sex: Female
  Weight: 64 kg

DRUGS (9)
  1. EVISTA [Suspect]
     Indication: OSTEOPOROSIS
     Dosage: 60 MG/1 DAY
  2. FORTEO [Suspect]
     Indication: OSTEOPOROSIS
     Dosage: 20 UG/1 DAY
     Dates: start: 20040225
  3. DARVOCET-N 100 [Concomitant]
  4. ZOLOFT [Concomitant]
  5. NORVASC [Concomitant]
  6. NEXIUM [Concomitant]
  7. PLAVIX [Concomitant]
  8. ATIVAN [Concomitant]
  9. COUMADIN [Concomitant]

REACTIONS (5)
  - BLOOD GLUCOSE INCREASED [None]
  - FALL [None]
  - HIP FRACTURE [None]
  - SPINAL FRACTURE [None]
  - TREMOR [None]
